FAERS Safety Report 10329580 (Version 2)
Quarter: 2014Q3

REPORT INFORMATION
  Report Type: Spontaneous
  Country: US (occurrence: US)
  Receive Date: 20140721
  Receipt Date: 20140822
  Transmission Date: 20150326
  Serious: Yes (Hospitalization)
  Sender: FDA-Public Use
  Company Number: US-PFIZER INC-2014202809

PATIENT
  Age: 84 Year
  Sex: Female
  Weight: 81.63 kg

DRUGS (3)
  1. ALLOPURINOL. [Concomitant]
     Active Substance: ALLOPURINOL
     Indication: GOUT
     Dosage: UNK
  2. CELEBREX [Suspect]
     Active Substance: CELECOXIB
     Indication: ARTHRITIS
     Dosage: 200 MG, 2X/DAY
     Route: 048
  3. PREMARIN [Suspect]
     Active Substance: ESTROGENS, CONJUGATED
     Indication: OESTROGEN THERAPY
     Dosage: 0.45 MG, 1X/3 DAYS (ONCE IN THREE DAYS)
     Route: 067

REACTIONS (4)
  - Intestinal obstruction [Unknown]
  - Blood cholesterol increased [Unknown]
  - Weight decreased [Unknown]
  - Hernia [Unknown]

NARRATIVE: CASE EVENT DATE: 201401
